FAERS Safety Report 22604871 (Version 1)
Quarter: 2023Q2

REPORT INFORMATION
  Report Type: Spontaneous
  Country: US (occurrence: US)
  Receive Date: 20230615
  Receipt Date: 20230615
  Transmission Date: 20230721
  Serious: Yes (Hospitalization)
  Sender: FDA-Public Use
  Company Number: US-STRIDES ARCOLAB LIMITED-2023SP008643

PATIENT
  Age: 22 Year
  Sex: Female

DRUGS (1)
  1. PREDNISOLONE [Suspect]
     Active Substance: PREDNISOLONE
     Indication: Colitis ulcerative
     Dosage: 40 MILLIGRAM; PER DAY
     Route: 048

REACTIONS (6)
  - Tuberculosis [Unknown]
  - Disease recurrence [Unknown]
  - Strongyloidiasis [Unknown]
  - Drug ineffective [Unknown]
  - Infection parasitic [Recovered/Resolved]
  - Large intestine infection [Recovered/Resolved]
